FAERS Safety Report 9608255 (Version 2)
Quarter: 2013Q4

REPORT INFORMATION
  Report Type: Spontaneous
  Country: US (occurrence: US)
  Receive Date: 20131009
  Receipt Date: 20131101
  Transmission Date: 20140711
  Serious: No
  Sender: FDA-Public Use
  Company Number: US-PFIZER INC-2013288226

PATIENT
  Age: 47 Year
  Sex: Female

DRUGS (4)
  1. NICOTROL INHALER [Suspect]
     Indication: SMOKING CESSATION THERAPY
     Dosage: UNK
     Route: 055
     Dates: start: 20130827
  2. ABILIFY [Concomitant]
     Dosage: 5 MG, 1X/DAYAT BEDTIME
     Dates: start: 20130709
  3. AMITRIPTYLINE [Concomitant]
     Dosage: 75 MG, 1X/DAY AT BEDTIME
     Dates: start: 20130824
  4. AMOXICILIN [Concomitant]
     Dosage: 875 MG, EVERY 12 HOURS
     Dates: start: 20130923, end: 20131003

REACTIONS (1)
  - Drug ineffective [Recovered/Resolved]
